FAERS Safety Report 7922868-4 (Version None)
Quarter: 2011Q4

REPORT INFORMATION
  Report Type: 
  Country: None (occurrence: None)
  Receive Date: 20111117
  Receipt Date: 20110125
  Transmission Date: 20120403
  Serious: No
  Sender: FDA-Public Use
  Company Number: US-AMGEN-USASP2011004501

PATIENT
  Age: 56 Year
  Sex: Male

DRUGS (2)
  1. METHOTREXATE (TREXALL) [Concomitant]
     Dates: start: 20110101
  2. ENBREL [Suspect]
     Indication: RHEUMATOID ARTHRITIS
     Dates: start: 20101201

REACTIONS (2)
  - DRUG INEFFECTIVE [None]
  - GAIT DISTURBANCE [None]
